FAERS Safety Report 9470066 (Version 1)
Quarter: 2013Q3

REPORT INFORMATION
  Report Type: Spontaneous
  Country: DK (occurrence: GB)
  Receive Date: 20130822
  Receipt Date: 20130822
  Transmission Date: 20140515
  Serious: Yes (Disabling)
  Sender: FDA-Public Use
  Company Number: GB-FRI-1000047964

PATIENT
  Age: 18 Year
  Sex: Male
  Weight: 64 kg

DRUGS (2)
  1. CITALOPRAM [Suspect]
     Indication: ANXIETY
     Dosage: 10 MG
     Route: 048
     Dates: start: 200912, end: 201102
  2. CITALOPRAM [Suspect]
     Indication: PANIC ATTACK

REACTIONS (1)
  - Sexual dysfunction [Not Recovered/Not Resolved]
